FAERS Safety Report 14868637 (Version 1)
Quarter: 2018Q2

REPORT INFORMATION
  Report Type: Spontaneous
  Country: FR (occurrence: FR)
  Receive Date: 20180509
  Receipt Date: 20180509
  Transmission Date: 20180711
  Serious: Yes (Other)
  Sender: FDA-Public Use
  Company Number: FR-MERCK KGAA-2047459

PATIENT
  Sex: Female

DRUGS (11)
  1. METOPROLOL. [Concomitant]
     Active Substance: METOPROLOL
  2. DEKRISTOL [Concomitant]
     Active Substance: CHOLECALCIFEROL
  3. NOVOTHYROX [Suspect]
     Active Substance: LEVOTHYROXINE SODIUM
     Indication: HYPOTHYROIDISM
     Dates: start: 2017
  4. EUTHYROX [Suspect]
     Active Substance: LEVOTHYROXINE SODIUM
  5. FERROSANOL [Concomitant]
     Active Substance: FERROUS GLUCONATE
  6. EUTHYROX [Suspect]
     Active Substance: LEVOTHYROXINE SODIUM
  7. MOXONIDINE [Concomitant]
     Active Substance: MOXONIDINE
  8. AMOXICILLIN. [Concomitant]
     Active Substance: AMOXICILLIN
  9. EUTHYROX [Suspect]
     Active Substance: LEVOTHYROXINE SODIUM
     Dates: start: 20180427
  10. IVABRADINE [Concomitant]
     Active Substance: IVABRADINE
  11. VITAMIN B12 [Concomitant]
     Active Substance: CYANOCOBALAMIN

REACTIONS (34)
  - Glomerulonephritis [None]
  - Weight increased [Not Recovered/Not Resolved]
  - Limb discomfort [None]
  - Oral discomfort [Recovered/Resolved]
  - Proteinuria [None]
  - Swelling [None]
  - Hyperhidrosis [None]
  - Sinus tachycardia [None]
  - Vertigo [None]
  - Drug intolerance [None]
  - Nausea [None]
  - Hypertension [None]
  - Furuncle [None]
  - Blood thyroid stimulating hormone increased [None]
  - Temperature intolerance [None]
  - Eructation [None]
  - Gait disturbance [None]
  - Dizziness [None]
  - Arrhythmia [None]
  - Throat tightness [None]
  - Dyspepsia [Recovered/Resolved]
  - Angioedema [None]
  - Eye swelling [Not Recovered/Not Resolved]
  - Oedema peripheral [None]
  - Antinuclear antibody positive [None]
  - Urticaria chronic [None]
  - Sensation of foreign body [Recovered/Resolved]
  - Anxiety [None]
  - Feeling hot [None]
  - Palpitations [None]
  - Throat irritation [Recovered/Resolved]
  - Peripheral swelling [None]
  - Lip swelling [None]
  - Restlessness [None]

NARRATIVE: CASE EVENT DATE: 2017
